FAERS Safety Report 9235710 (Version 2)
Quarter: 2013Q2

REPORT INFORMATION
  Report Type: Spontaneous
  Country: US (occurrence: US)
  Receive Date: 20130417
  Receipt Date: 20130418
  Transmission Date: 20140414
  Serious: Yes (Hospitalization)
  Sender: FDA-Public Use
  Company Number: US-BAYER-2013-046894

PATIENT
  Age: 31 Year
  Sex: Female
  Weight: 77 kg

DRUGS (4)
  1. YAZ [Suspect]
     Indication: ACNE
     Dosage: UNK
     Dates: start: 200806, end: 200811
  2. DUAC [Concomitant]
     Dosage: UNK UNK, QD
  3. DIFFERIN [Concomitant]
     Dosage: UNK, 0.1% GEL, QHS
  4. MINOCYCLINE [Concomitant]
     Dosage: 100 MG, BID
     Route: 048

REACTIONS (8)
  - Pulmonary embolism [None]
  - Injury [None]
  - Pain [None]
  - General physical health deterioration [None]
  - Anxiety [None]
  - Emotional distress [None]
  - Anhedonia [None]
  - Pain [None]
